FAERS Safety Report 17648416 (Version 1)
Quarter: 2020Q2

REPORT INFORMATION
  Report Type: Spontaneous
  Country: US (occurrence: US)
  Receive Date: 20200408
  Receipt Date: 20200408
  Transmission Date: 20200713
  Serious: Yes (Other)
  Sender: FDA-Public Use
  Company Number: US-JNJFOC-20200400854

PATIENT
  Sex: Female
  Weight: 94.89 kg

DRUGS (3)
  1. INVEGA SUSTENNA [Suspect]
     Active Substance: PALIPERIDONE PALMITATE
     Indication: SCHIZOPHRENIA
     Route: 030
     Dates: start: 2018, end: 201912
  2. INVEGA SUSTENNA [Suspect]
     Active Substance: PALIPERIDONE PALMITATE
  3. INVEGA SUSTENNA [Suspect]
     Active Substance: PALIPERIDONE PALMITATE

REACTIONS (11)
  - Euphoric mood [Recovered/Resolved]
  - Hallucination [Recovering/Resolving]
  - Abnormal weight gain [Not Recovered/Not Resolved]
  - Speech disorder [Not Recovered/Not Resolved]
  - Peripheral nerve injury [Unknown]
  - Memory impairment [Not Recovered/Not Resolved]
  - Hyperphagia [Unknown]
  - Thyroid disorder [Unknown]
  - Tremor [Recovered/Resolved]
  - Gait disturbance [Not Recovered/Not Resolved]
  - Abnormal behaviour [Not Recovered/Not Resolved]

NARRATIVE: CASE EVENT DATE: 2018
